FAERS Safety Report 9182255 (Version 1)
Quarter: 2012Q4

REPORT INFORMATION
  Report Type: 
  Country: US (occurrence: US)
  Receive Date: 20121030
  Receipt Date: 20121030
  Transmission Date: 20130627
  Serious: No
  Sender: FDA-Public Use
  Company Number: US-GLAXOSMITHKLINE-A0982318A

PATIENT
  Age: 68 Year
  Sex: Female

DRUGS (6)
  1. SEREVENT [Suspect]
     Indication: PRODUCT USED FOR UNKNOWN INDICATION
     Dosage: 1PUFF Twice per day
     Route: 055
  2. METOPROLOL TARTRATE [Concomitant]
  3. MAXZIDE [Concomitant]
  4. PANTOPRAZOLE [Concomitant]
  5. ZOCOR [Concomitant]
  6. CIPRO [Concomitant]

REACTIONS (2)
  - Dyspnoea [Unknown]
  - Drug ineffective [Unknown]
